FAERS Safety Report 12987523 (Version 1)
Quarter: 2016Q4

REPORT INFORMATION
  Report Type: Spontaneous
  Country: CN (occurrence: CN)
  Receive Date: 20161130
  Receipt Date: 20161130
  Transmission Date: 20170207
  Serious: Yes (Other)
  Sender: FDA-Public Use
  Company Number: CN-BAYER-2016-225183

PATIENT
  Age: 55 Year
  Sex: Female

DRUGS (2)
  1. GLUCOBAY [Suspect]
     Active Substance: ACARBOSE
     Dosage: UNK
  2. BAYASPIRIN 100 MG [Suspect]
     Active Substance: ASPIRIN
     Dosage: UNK
     Route: 048
     Dates: start: 201611

REACTIONS (8)
  - Abdominal discomfort [None]
  - Dizziness [None]
  - Urine analysis abnormal [None]
  - Gastroenteritis shigella [None]
  - Nausea [None]
  - Drug administration error [None]
  - Gastrointestinal disorder [Recovered/Resolved]
  - Diarrhoea [None]

NARRATIVE: CASE EVENT DATE: 201611
